FAERS Safety Report 6327568-2 (Version None)
Quarter: 2009Q3

REPORT INFORMATION
  Report Type: 
  Country: None (occurrence: None)
  Receive Date: 20090825
  Receipt Date: 20090818
  Transmission Date: 20100115
  Serious: Yes (Other)
  Sender: FDA-Public Use
  Company Number: US-ELI_LILLY_AND_COMPANY-US200908002341

PATIENT
  Sex: Female

DRUGS (16)
  1. BYETTA [Suspect]
     Indication: TYPE 2 DIABETES MELLITUS
     Dosage: 5 UG, UNKNOWN
     Route: 058
     Dates: start: 20080423, end: 20080601
  2. BYETTA [Suspect]
     Dosage: 10 UG, UNKNOWN
     Dates: start: 20080617, end: 20080801
  3. BYETTA [Suspect]
     Dates: start: 20080820
  4. BYETTA [Suspect]
     Dosage: 10 UG, UNKNOWN
     Dates: start: 20090611, end: 20090723
  5. ASPIRIN [Concomitant]
     Dosage: 81 MG, DAILY (1/D)
     Route: 048
  6. CALCIUM 600 + D [Concomitant]
     Dosage: UNK, 2/D
     Route: 048
  7. CLARITIN [Concomitant]
     Dosage: 10 MG, DAILY (1/D)
     Route: 048
  8. ERGOCALCIFEROL [Concomitant]
     Dosage: 50000 U, WEEKLY (1/W)
     Route: 048
  9. GLYBURIDE [Concomitant]
     Dosage: 5 MG, 3/D
     Route: 048
  10. LASIX [Concomitant]
     Dosage: 20 MG, DAILY (1/D)
     Route: 048
  11. LISINOPRIL [Concomitant]
     Dosage: 20 MG, DAILY (1/D)
     Route: 048
  12. METOPROLOL [Concomitant]
     Dosage: 50 MG, DAILY (1/D)
     Route: 048
  13. MULTI-VITAMIN [Concomitant]
     Dosage: UNK, DAILY (1/D)
     Route: 048
  14. ALBUTEROL [Concomitant]
     Dosage: UNK, AS NEEDED
     Route: 055
  15. TRICOR [Concomitant]
     Dosage: 145 MG, EACH EVENING
     Route: 048
  16. VYTORIN [Concomitant]
     Dosage: UNK, DAILY (1/D)
     Route: 048

REACTIONS (2)
  - OFF LABEL USE [None]
  - PANCREATITIS [None]
